FAERS Safety Report 13380737 (Version 1)
Quarter: 2017Q1

REPORT INFORMATION
  Report Type: Spontaneous
  Country: US (occurrence: US)
  Receive Date: 20170328
  Receipt Date: 20170328
  Transmission Date: 20170429
  Serious: Yes (Other)
  Sender: FDA-Public Use
  Company Number: None

PATIENT
  Age: 56 Year
  Sex: Female

DRUGS (1)
  1. ENBREL [Suspect]
     Active Substance: ETANERCEPT
     Indication: RHEUMATOID ARTHRITIS
     Dosage: ?          OTHER FREQUENCY:ONCE WEEKLY;?
     Route: 058
     Dates: start: 20170210, end: 20170328

REACTIONS (7)
  - Injection site rash [None]
  - Fatigue [None]
  - Asthenia [None]
  - Injection site erythema [None]
  - Injection site irritation [None]
  - Injection site pruritus [None]
  - Nausea [None]

NARRATIVE: CASE EVENT DATE: 20170328
